FAERS Safety Report 7152539-6 (Version None)
Quarter: 2010Q4

REPORT INFORMATION
  Report Type: 
  Country: None (occurrence: None)
  Receive Date: 20101213
  Receipt Date: 20101130
  Transmission Date: 20110411
  Serious: Yes (Hospitalization)
  Sender: FDA-Public Use
  Company Number: ES-CELGENEUS-144-C5013-10100814

PATIENT
  Sex: Male

DRUGS (15)
  1. CC-5013\PLACEBO [Suspect]
     Indication: PROSTATE CANCER
     Route: 048
     Dates: start: 20100618
  2. CC-5013\PLACEBO [Suspect]
     Route: 048
     Dates: start: 20100913, end: 20100926
  3. DOCETAXEL [Suspect]
     Indication: PROSTATE CANCER
     Route: 065
     Dates: start: 20100618
  4. DOCETAXEL [Suspect]
     Route: 065
     Dates: start: 20100913, end: 20100913
  5. PREDNISONE [Suspect]
     Indication: PROSTATE CANCER
     Route: 065
     Dates: start: 20100618
  6. PREDNISONE [Suspect]
     Route: 065
     Dates: start: 20100913
  7. MORPHINE [Suspect]
     Indication: PELVIC PAIN
     Route: 048
  8. BIPERIDEN HYDROCHLORIDE TAB [Concomitant]
     Indication: PARKINSONISM
     Route: 048
     Dates: start: 20100724
  9. ALPRAZOLAM [Concomitant]
     Route: 048
  10. CLONAZEPAM [Concomitant]
     Indication: PARKINSONISM
     Route: 048
     Dates: start: 20100708
  11. ACETYLSALICYLIC ACID [Concomitant]
     Indication: THROMBOSIS PROPHYLAXIS
     Route: 048
     Dates: start: 20100618
  12. LORAZEPAM [Concomitant]
     Route: 048
  13. OMEPRAZOLE [Concomitant]
     Indication: PROPHYLAXIS
     Route: 048
     Dates: start: 20100401
  14. HIDROMORFONA [Concomitant]
     Indication: PELVIC PAIN
     Route: 048
     Dates: start: 20100719
  15. MOVICOL [Concomitant]
     Indication: CONSTIPATION
     Route: 048
     Dates: start: 20100401

REACTIONS (5)
  - ABDOMINAL PAIN [None]
  - CONSTIPATION [None]
  - FAECALOMA [None]
  - NAUSEA [None]
  - VOMITING [None]
